FAERS Safety Report 20135375 (Version 1)
Quarter: 2021Q4

REPORT INFORMATION
  Report Type: Spontaneous
  Country: CN (occurrence: CN)
  Receive Date: 20211201
  Receipt Date: 20211201
  Transmission Date: 20220303
  Serious: Yes (Other)
  Sender: FDA-Public Use
  Company Number: CN-BAYER-2021A258620

PATIENT
  Age: 47 Year
  Sex: Male
  Weight: 45 kg

DRUGS (2)
  1. STIVARGA [Suspect]
     Active Substance: REGORAFENIB
     Indication: Neoplasm
     Dosage: 160 MG, QD
     Route: 048
     Dates: start: 20181029, end: 20190202
  2. STIVARGA [Suspect]
     Active Substance: REGORAFENIB
     Indication: Neoplasm
     Dosage: 120 MG
     Route: 048
     Dates: start: 20190203

REACTIONS (9)
  - Pericardial effusion [None]
  - Diarrhoea [None]
  - Mouth ulceration [None]
  - Skin induration [None]
  - Skin exfoliation [None]
  - Heart rate increased [Not Recovered/Not Resolved]
  - Left ventricular dysfunction [None]
  - Ventricular hypertrophy [None]
  - Aortic dilatation [None]

NARRATIVE: CASE EVENT DATE: 20181101
